FAERS Safety Report 5859407-8 (Version None)
Quarter: 2008Q3

REPORT INFORMATION
  Report Type: 
  Country: None (occurrence: None)
  Receive Date: 20080827
  Receipt Date: 20080819
  Transmission Date: 20090109
  Serious: Yes (Other)
  Sender: FDA-Public Use
  Company Number: US-ASTRAZENECA-2008UW14015

PATIENT
  Age: 54 Year
  Sex: Female
  Weight: 74.8 kg

DRUGS (4)
  1. ARIMIDEX [Suspect]
     Indication: BREAST CANCER
     Route: 048
     Dates: start: 20050601, end: 20080619
  2. LEXAPRO [Concomitant]
  3. GLUCOSAMINE [Concomitant]
  4. CHONDROITIN [Concomitant]

REACTIONS (13)
  - ARTHRALGIA [None]
  - BALANCE DISORDER [None]
  - FALL [None]
  - FATIGUE [None]
  - GAIT DISTURBANCE [None]
  - HOT FLUSH [None]
  - INSOMNIA [None]
  - JOINT SPRAIN [None]
  - JOINT STIFFNESS [None]
  - OSTEOPENIA [None]
  - PSORIASIS [None]
  - QUALITY OF LIFE DECREASED [None]
  - WEIGHT INCREASED [None]
